FAERS Safety Report 8399307-5 (Version None)
Quarter: 2012Q2

REPORT INFORMATION
  Report Type: 
  Country: None (occurrence: None)
  Receive Date: 20120531
  Receipt Date: 20120519
  Transmission Date: 20120825
  Serious: Yes (Other)
  Sender: FDA-Public Use
  Company Number: US-JNJFOC-20120520588

PATIENT
  Age: 17 Year
  Sex: Male

DRUGS (2)
  1. HEROIN [Suspect]
     Indication: DRUG ABUSE
     Route: 065
  2. TYLENOL PM [Suspect]
     Indication: INTENTIONAL DRUG MISUSE
     Route: 065

REACTIONS (1)
  - SUBSTANCE ABUSE [None]
